FAERS Safety Report 4380974-8 (Version None)
Quarter: 2004Q2

REPORT INFORMATION
  Report Type: 
  Country: None (occurrence: None)
  Receive Date: 20040614
  Receipt Date: 20040607
  Transmission Date: 20050107
  Serious: Yes (Other)
  Sender: FDA-Public Use
  Company Number: GBWYE812808JUN04

PATIENT
  Sex: Female

DRUGS (2)
  1. EFFEXOR [Suspect]
     Dosage: 37.5 MG 1X PER 1 DAY, ORAL
     Route: 048
     Dates: start: 20031001
  2. MIRENA [Concomitant]

REACTIONS (8)
  - CONDITION AGGRAVATED [None]
  - GENERAL SYMPTOM [None]
  - HAEMOGLOBIN DECREASED [None]
  - MENORRHAGIA [None]
  - MENSTRUAL DISCOMFORT [None]
  - MENSTRUATION IRREGULAR [None]
  - OLIGOMENORRHOEA [None]
  - UTERINE LEIOMYOMA [None]
